FAERS Safety Report 8881762 (Version 3)
Quarter: 2012Q4

REPORT INFORMATION
  Report Type: 
  Country: CO (occurrence: CO)
  Receive Date: 20121101
  Receipt Date: 20121211
  Transmission Date: 20130627
  Serious: Yes (Death, Hospitalization, Other)
  Sender: FDA-Public Use
  Company Number: CO-ELI_LILLY_AND_COMPANY-CO201210008480

PATIENT
  Age: 77 Year
  Sex: Male

DRUGS (2)
  1. FORTEO [Suspect]
     Indication: OSTEOPOROSIS
     Dosage: 20 ug, qd
     Dates: start: 201208
  2. CALCIUM [Concomitant]

REACTIONS (6)
  - Respiratory failure [Fatal]
  - Pulmonary embolism [Unknown]
  - Pneumonia [Unknown]
  - Infectious pleural effusion [Unknown]
  - Systemic mycosis [Unknown]
  - Prostatic disorder [Unknown]
